FAERS Safety Report 5345319-5 (Version None)
Quarter: 2007Q2

REPORT INFORMATION
  Report Type: 
  Country: None (occurrence: None)
  Receive Date: 20070601
  Receipt Date: 20070511
  Transmission Date: 20071010
  Serious: Yes (Hospitalization)
  Sender: FDA-Public Use
  Company Number: S07-FRA-02164-01

PATIENT
  Age: 79 Year
  Sex: Female

DRUGS (6)
  1. ESCITALOPRAM [Suspect]
     Indication: DEPRESSION
     Dosage: 0.5 UNITS QD PO
     Route: 048
     Dates: start: 20070108, end: 20070118
  2. ESCITALOPRAM [Suspect]
     Indication: DEPRESSION
     Dosage: 1.5 UNITS QD PO
     Route: 048
  3. LEXOMIL (BROMAZEPAM) [Concomitant]
  4. INDAPAMIDE [Concomitant]
  5. OSSOPAN (DURAPATITE) [Concomitant]
  6. TEVETEN [Concomitant]

REACTIONS (18)
  - APHASIA [None]
  - ASTHENIA [None]
  - BLOOD CALCIUM DECREASED [None]
  - BLOOD CHLORIDE DECREASED [None]
  - BLOOD GLUCOSE INCREASED [None]
  - BLOOD PRESSURE INCREASED [None]
  - BLOOD UREA INCREASED [None]
  - BODY TEMPERATURE DECREASED [None]
  - C-REACTIVE PROTEIN INCREASED [None]
  - CARBON DIOXIDE DECREASED [None]
  - CREATININE RENAL CLEARANCE DECREASED [None]
  - DYSKINESIA [None]
  - FALL [None]
  - HYPONATRAEMIA [None]
  - LOSS OF CONSCIOUSNESS [None]
  - MEDICATION ERROR [None]
  - URINE POTASSIUM DECREASED [None]
  - URINE SODIUM DECREASED [None]
